FAERS Safety Report 5677048-2 (Version None)
Quarter: 2008Q1

REPORT INFORMATION
  Report Type: 
  Country: None (occurrence: None)
  Receive Date: 20080324
  Receipt Date: 20080318
  Transmission Date: 20080703
  Serious: Yes (Hospitalization, Other)
  Sender: FDA-Public Use
  Company Number: AU-AVENTIS-200812492GDDC

PATIENT
  Age: 71 Year
  Sex: Male

DRUGS (2)
  1. LANTUS [Suspect]
     Route: 058
     Dates: start: 20061201
  2. AUTOPEN INSULIN INJECTION PEN [Suspect]

REACTIONS (3)
  - CONSTIPATION [None]
  - HERNIA [None]
  - INTESTINAL POLYP [None]
